FAERS Safety Report 5391574-5 (Version None)
Quarter: 2007Q3

REPORT INFORMATION
  Report Type: 
  Country: None (occurrence: None)
  Receive Date: 20070717
  Receipt Date: 20070702
  Transmission Date: 20080115
  Serious: Yes (Death)
  Sender: FDA-Public Use
  Company Number: 100#08#2007-02433

PATIENT
  Age: 27 Year
  Sex: Male

DRUGS (1)
  1. DESMOPRESSIN(DESMOPRESSIN) (NASAL DROPS (INCLUDING NASAL SPRAY) (DESMO [Suspect]
     Indication: ENURESIS
     Dosage: NASAL
     Route: 045

REACTIONS (8)
  - BRAIN CONTUSION [None]
  - BRAIN OEDEMA [None]
  - CONVULSION [None]
  - FALL [None]
  - HYPONATRAEMIA [None]
  - POLYDIPSIA [None]
  - SUBDURAL HAEMATOMA [None]
  - TRAUMATIC BRAIN INJURY [None]
